FAERS Safety Report 8962544 (Version 1)
Quarter: 2012Q4

REPORT INFORMATION
  Report Type: Report from Study
  Country: DE (occurrence: DE)
  Receive Date: 20121213
  Receipt Date: 20121213
  Transmission Date: 20130627
  Serious: Yes (Life-Threatening, Hospitalization)
  Sender: FDA-Public Use
  Company Number: DE-SANOFI-AVENTIS-2012SA090826

PATIENT
  Age: 59 Year
  Sex: Female

DRUGS (10)
  1. DOCETAXEL [Suspect]
     Indication: GASTROESOPHAGEAL CANCER
     Route: 041
     Dates: start: 20121129, end: 20121129
  2. OXALIPLATIN [Suspect]
     Indication: GASTROESOPHAGEAL CANCER
     Route: 041
     Dates: start: 20121129, end: 20121129
  3. 5-FU [Suspect]
     Indication: GASTROESOPHAGEAL CANCER
     Route: 041
     Dates: start: 20121129, end: 20121129
  4. FOLINIC ACID [Suspect]
     Indication: GASTROESOPHAGEAL CANCER
     Route: 042
     Dates: start: 20121129, end: 20121129
  5. ACETYLSALICYLIC ACID [Concomitant]
  6. RAMIPRIL [Concomitant]
  7. BISOPROLOL [Concomitant]
  8. PAROXETIN [Concomitant]
  9. PANTOZOL [Concomitant]
  10. FLUVASTATIN [Concomitant]

REACTIONS (7)
  - Atrial fibrillation [Recovered/Resolved]
  - Palpitations [Recovered/Resolved]
  - Syncope [Recovered/Resolved]
  - Dizziness [Recovered/Resolved]
  - Blood pressure decreased [Recovered/Resolved]
  - General physical health deterioration [Recovered/Resolved]
  - Vomiting [Recovered/Resolved]
